FAERS Safety Report 9914982 (Version 4)
Quarter: 2014Q2

REPORT INFORMATION
  Report Type: Spontaneous
  Country: US (occurrence: US)
  Receive Date: 20140220
  Receipt Date: 20140408
  Transmission Date: 20141212
  Serious: Yes (Hospitalization, Other)
  Sender: FDA-Public Use
  Company Number: US-009507513-1203USA02811

PATIENT
  Sex: Female
  Weight: 53 kg

DRUGS (16)
  1. FOSAMAX [Suspect]
     Indication: OSTEOPENIA
     Dosage: 5 MG, QD
     Route: 048
     Dates: start: 19980115
  2. FOSAMAX [Suspect]
     Indication: BONE DENSITY DECREASED
     Dosage: 70 MG, QW
     Route: 048
  3. FOSAMAX [Suspect]
     Indication: OSTEOPOROSIS
  4. FOSAMAX [Suspect]
     Indication: BONE DENSITY DECREASED
     Route: 048
  5. FOSAMAX [Suspect]
     Indication: OSTEOPOROSIS
  6. BONIVA [Suspect]
     Dosage: UNKNOWN
  7. BONDRONAT [Suspect]
     Dosage: UNKNOWN
  8. PREDNISONE [Suspect]
     Dosage: 5 MG, QD
     Route: 048
  9. CALCIUM (UNSPECIFIED) [Concomitant]
     Indication: OSTEOPENIA
  10. CALCIUM (UNSPECIFIED) [Concomitant]
     Indication: BONE DENSITY DECREASED
  11. VITAMIN D (UNSPECIFIED) [Concomitant]
     Indication: OSTEOPENIA
  12. VITAMIN D (UNSPECIFIED) [Concomitant]
     Indication: BONE DENSITY DECREASED
  13. PREMPRO [Concomitant]
     Indication: OSTEOPENIA
  14. PREMPRO [Concomitant]
     Indication: BONE DENSITY DECREASED
  15. PREMPHASE [Concomitant]
     Indication: OSTEOPENIA
  16. PREMPHASE [Concomitant]
     Indication: BONE DENSITY DECREASED

REACTIONS (43)
  - Femur fracture [Recovered/Resolved]
  - Intramedullary rod insertion [Unknown]
  - Intramedullary rod insertion [Unknown]
  - Ankle fracture [Recovered/Resolved]
  - Open reduction of fracture [Unknown]
  - Open reduction of fracture [Unknown]
  - Breast cancer [Unknown]
  - Mastectomy [Unknown]
  - Femur fracture [Recovered/Resolved]
  - Medical device removal [Unknown]
  - Medical device removal [Unknown]
  - Device failure [Unknown]
  - Device failure [Unknown]
  - Fracture delayed union [Unknown]
  - Bone disorder [Unknown]
  - Postmenopausal haemorrhage [Unknown]
  - Goitre [Unknown]
  - Limb operation [Unknown]
  - Fall [Unknown]
  - Spinal cord disorder [Unknown]
  - Joint injury [Unknown]
  - Fibrocystic breast disease [Unknown]
  - Arthritis [Unknown]
  - Skin abrasion [Unknown]
  - Plantar fasciitis [Unknown]
  - Balance disorder [Unknown]
  - Myositis ossificans [Unknown]
  - Foot fracture [Unknown]
  - Radius fracture [Unknown]
  - Hypothyroidism [Unknown]
  - Rheumatoid arthritis [Unknown]
  - Raynaud^s phenomenon [Unknown]
  - Bunion operation [Unknown]
  - Osteoarthritis [Unknown]
  - Foot deformity [Unknown]
  - Joint effusion [Unknown]
  - Rotator cuff syndrome [Unknown]
  - Extrasystoles [Unknown]
  - Osteoarthritis [Unknown]
  - Polyarthritis [Unknown]
  - Osteoarthritis [Unknown]
  - Arthralgia [Unknown]
  - Constipation [Unknown]
